FAERS Safety Report 4500782-4 (Version None)
Quarter: 2004Q4

REPORT INFORMATION
  Report Type: 
  Country: None (occurrence: None)
  Receive Date: 20041112
  Receipt Date: 20041112
  Transmission Date: 20050328
  Serious: Yes (Other)
  Sender: FDA-Public Use
  Company Number: None

PATIENT
  Age: 40 Year
  Sex: Female
  Weight: 68.4932 kg

DRUGS (5)
  1. DEPO-PROVERA [Suspect]
     Indication: CONTRACEPTION
     Dosage: 150 MG Q 12 WKS
     Dates: start: 20010220
  2. DEPO-PROVERA [Suspect]
     Indication: CONTRACEPTION
     Dosage: 150 MG Q 12 WKS
     Dates: start: 20031125
  3. DEPO-PROVERA [Suspect]
     Indication: CONTRACEPTION
     Dosage: 150 MG Q 12 WKS
     Dates: start: 20040217
  4. DEPO-PROVERA [Suspect]
     Indication: CONTRACEPTION
     Dosage: 150 MG Q 12 WKS
     Dates: start: 20040510
  5. DEPO-PROVERA [Suspect]
     Indication: CONTRACEPTION
     Dosage: 150 MG Q 12 WKS
     Dates: start: 20040805

REACTIONS (1)
  - PREGNANCY WITH INJECTABLE CONTRACEPTIVE [None]
